FAERS Safety Report 16465622 (Version 2)
Quarter: 2019Q3

REPORT INFORMATION
  Report Type: Spontaneous
  Country: EG (occurrence: EG)
  Receive Date: 20190621
  Receipt Date: 20190702
  Transmission Date: 20191004
  Serious: Yes (Other)
  Sender: FDA-Public Use
  Company Number: EG-NOVOPROD-668160

PATIENT
  Age: 33 Year
  Sex: Female
  Weight: 55 kg

DRUGS (2)
  1. CALCIMATE [CALCIUM CARBONATE] [Concomitant]
     Indication: CALCIUM DEFICIENCY
     Dosage: 1TAB/NIGHT(6YEARS)
     Route: 048
  2. ACTRAPID [Suspect]
     Active Substance: INSULIN HUMAN
     Indication: GESTATIONAL DIABETES
     Dosage: 20 IU, QD (6U MORNING,8U LUNCH,6U NIGHT)
     Route: 058

REACTIONS (4)
  - Exposure during pregnancy [Recovered/Resolved]
  - Foetal death [Unknown]
  - Hyperglycaemia [Not Recovered/Not Resolved]
  - Underdose [Unknown]

NARRATIVE: CASE EVENT DATE: 20190611
